FAERS Safety Report 11205147 (Version 1)
Quarter: 2015Q2

REPORT INFORMATION
  Report Type: Spontaneous
  Country: US (occurrence: US)
  Receive Date: 20150622
  Receipt Date: 20150622
  Transmission Date: 20150821
  Serious: No
  Sender: FDA-Public Use
  Company Number: US-SUN PHARMACEUTICAL INDUSTRIES LTD-2015US-98441

PATIENT
  Age: 45 Year
  Sex: Male
  Weight: 109.75 kg

DRUGS (1)
  1. TESTOSTERONE. [Suspect]
     Active Substance: TESTOSTERONE
     Indication: WEIGHT INCREASED
     Dosage: 0.2 ML, 2/WEEK
     Route: 065
     Dates: start: 2015

REACTIONS (3)
  - Product physical consistency issue [Unknown]
  - Product substitution issue [Unknown]
  - Drug ineffective [Unknown]

NARRATIVE: CASE EVENT DATE: 201505
